FAERS Safety Report 18236194 (Version 2)
Quarter: 2021Q1

REPORT INFORMATION
  Report Type: Spontaneous
  Country: US (occurrence: US)
  Receive Date: 20200906
  Receipt Date: 20210113
  Transmission Date: 20210419
  Serious: No
  Sender: FDA-Public Use
  Company Number: US-ELI_LILLY_AND_COMPANY-US202008011860

PATIENT
  Sex: Female

DRUGS (2)
  1. BASAGLAR [Suspect]
     Active Substance: INSULIN GLARGINE
     Indication: PRODUCT USED FOR UNKNOWN INDICATION
     Dosage: UNK UNK, UNKNOWN
     Route: 058
  2. BASAGLAR [Suspect]
     Active Substance: INSULIN GLARGINE
     Dosage: UNK UNK, UNKNOWN
     Route: 065

REACTIONS (4)
  - Blood glucose increased [Not Recovered/Not Resolved]
  - Injection site urticaria [Recovering/Resolving]
  - Injection site reaction [Recovering/Resolving]
  - Skin wrinkling [Unknown]
